FAERS Safety Report 25241544 (Version 1)
Quarter: 2025Q2

REPORT INFORMATION
  Report Type: Spontaneous
  Country: DE (occurrence: DE)
  Receive Date: 20250426
  Receipt Date: 20250426
  Transmission Date: 20250716
  Serious: Yes (Hospitalization)
  Sender: MERCK SHARP & DOHME LLC
  Company Number: DE-009507513-2277673

PATIENT
  Age: 79 Year
  Sex: Male

DRUGS (1)
  1. KEYTRUDA [Suspect]
     Active Substance: PEMBROLIZUMAB
     Indication: Clear cell renal cell carcinoma

REACTIONS (5)
  - Gastrointestinal haemorrhage [Unknown]
  - Choroidal effusion [Recovered/Resolved with Sequelae]
  - Immune-mediated pancreatitis [Unknown]
  - Ascites [Unknown]
  - Pleural effusion [Unknown]
